FAERS Safety Report 20814939 (Version 1)
Quarter: 2022Q2

REPORT INFORMATION
  Report Type: Spontaneous
  Country: CN (occurrence: CN)
  Receive Date: 20220511
  Receipt Date: 20220511
  Transmission Date: 20220721
  Serious: Yes (Other)
  Sender: FDA-Public Use
  Company Number: CN-BAYER-2022A067693

PATIENT
  Age: 51 Year
  Sex: Male
  Weight: 61 kg

DRUGS (1)
  1. ULTRAVIST [Suspect]
     Active Substance: IOPROMIDE
     Indication: Computerised tomogram
     Dosage: 65 ML, ONCE
     Route: 042
     Dates: start: 20220420, end: 20220420

REACTIONS (6)
  - Abdominal pain [Recovering/Resolving]
  - Blood pressure decreased [Recovering/Resolving]
  - Heart rate decreased [Recovering/Resolving]
  - Unresponsive to stimuli [Recovering/Resolving]
  - Dizziness [Recovering/Resolving]
  - Asthenia [Recovered/Resolved]

NARRATIVE: CASE EVENT DATE: 20220420
